FAERS Safety Report 17218480 (Version 1)
Quarter: 2020Q1

REPORT INFORMATION
  Report Type: Spontaneous
  Country: US (occurrence: US)
  Receive Date: 20191230
  Receipt Date: 20191230
  Transmission Date: 20200409
  Serious: Yes (Other)
  Sender: FDA-Public Use
  Company Number: None

PATIENT
  Age: 56 Year
  Sex: Female
  Weight: 55.8 kg

DRUGS (2)
  1. FASENRA [Suspect]
     Active Substance: BENRALIZUMAB
     Indication: EOSINOPHILIA
     Dosage: ?          OTHER FREQUENCY:DETERMINED BY DOCT;?
     Route: 030
  2. FASENRA [Suspect]
     Active Substance: BENRALIZUMAB
     Indication: ASTHMA
     Dosage: ?          OTHER FREQUENCY:DETERMINED BY DOCT;?
     Route: 030

REACTIONS (5)
  - Arthralgia [None]
  - Pain in extremity [None]
  - Myalgia [None]
  - Alopecia [None]
  - Paraesthesia [None]

NARRATIVE: CASE EVENT DATE: 20190801
